FAERS Safety Report 10544542 (Version 2)
Quarter: 2014Q4

REPORT INFORMATION
  Report Type: Spontaneous
  Country: US (occurrence: US)
  Receive Date: 20141027
  Receipt Date: 20141113
  Transmission Date: 20150529
  Serious: No
  Sender: FDA-Public Use
  Company Number: US-009507513-1410USA011890

PATIENT
  Sex: Female

DRUGS (1)
  1. NEXPLANON [Suspect]
     Active Substance: ETONOGESTREL
     Indication: CONTRACEPTION
     Dosage: 1 ROD / ONCE EVERY THREE YEARS, IN THE ARM
     Route: 059

REACTIONS (2)
  - Device breakage [Unknown]
  - No adverse event [Unknown]

NARRATIVE: CASE EVENT DATE: 20141020
